FAERS Safety Report 19127850 (Version 1)
Quarter: 2021Q2

REPORT INFORMATION
  Report Type: Spontaneous
  Country: US (occurrence: US)
  Receive Date: 20210413
  Receipt Date: 20210413
  Transmission Date: 20210717
  Serious: No
  Sender: FDA-Public Use
  Company Number: None

PATIENT
  Sex: Female

DRUGS (1)
  1. ENBREL [Suspect]
     Active Substance: ETANERCEPT
     Indication: RHEUMATOID ARTHRITIS
     Route: 058
     Dates: start: 20210309

REACTIONS (8)
  - Hyperhidrosis [None]
  - Lip swelling [None]
  - Rash erythematous [None]
  - Dyspnoea [None]
  - Hypersensitivity [None]
  - Blister [None]
  - Pruritus [None]
  - Diarrhoea [None]
